FAERS Safety Report 11700769 (Version 1)
Quarter: 2015Q4

REPORT INFORMATION
  Report Type: Spontaneous
  Country: US (occurrence: None)
  Receive Date: 20151104
  Receipt Date: 20151104
  Transmission Date: 20160304
  Serious: No
  Sender: FDA-Public Use
  Company Number: None

PATIENT
  Sex: Male

DRUGS (6)
  1. TAMSULOSIN [Concomitant]
     Active Substance: TAMSULOSIN
  2. AVODART [Concomitant]
     Active Substance: DUTASTERIDE
  3. FERROUS SULF [Concomitant]
  4. DUTASTERIDE. [Concomitant]
     Active Substance: DUTASTERIDE
  5. FINASTERIDE. [Concomitant]
     Active Substance: FINASTERIDE
  6. SPRYCEL [Suspect]
     Active Substance: DASATINIB
     Indication: LEUKAEMIA
     Route: 048
     Dates: start: 20150310

REACTIONS (3)
  - Headache [None]
  - Bone pain [None]
  - Pain [None]
